FAERS Safety Report 5904068-2 (Version None)
Quarter: 2008Q3

REPORT INFORMATION
  Report Type: 
  Country: None (occurrence: None)
  Receive Date: 20080919
  Receipt Date: 20080630
  Transmission Date: 20090109
  Serious: Yes (Other)
  Sender: FDA-Public Use
  Company Number: US-WYE-H04831308

PATIENT
  Age: 41 Year
  Sex: Female
  Weight: 143.01 kg

DRUGS (4)
  1. PRISTIQ [Suspect]
     Indication: BIPOLAR I DISORDER
     Dosage: 50 MG 1X PER 2 DAY, ORAL
     Route: 048
     Dates: start: 20080529, end: 20080601
  2. PRISTIQ [Suspect]
     Indication: BIPOLAR I DISORDER
     Dosage: 50 MG 1X PER 2 DAY, ORAL
     Route: 048
     Dates: start: 20080601
  3. METFORMIN HCL [Concomitant]
  4. LAMICTAL [Concomitant]

REACTIONS (2)
  - CONDITION AGGRAVATED [None]
  - MANIA [None]
